FAERS Safety Report 8360761-6 (Version None)
Quarter: 2012Q1

REPORT INFORMATION
  Report Type: 
  Country: None (occurrence: None)
  Receive Date: 20120323
  Receipt Date: 20110125
  Transmission Date: 20120608
  Serious: Yes (Other)
  Sender: FDA-Public Use
  Company Number: 163-21880-11012888

PATIENT
  Age: 74 Year
  Sex: Male

DRUGS (12)
  1. LYRICA [Concomitant]
  2. TERAZOSIN HCL [Concomitant]
  3. DIGOXIN [Concomitant]
  4. REVLIMID [Suspect]
     Indication: MULTIPLE MYELOMA
     Dosage: 15 MG, DAILY X 21 DAYS, PO; 5 MG, DAILY X21 DAYS, PO
     Route: 048
     Dates: start: 20091101
  5. REVLIMID [Suspect]
     Indication: MULTIPLE MYELOMA
     Dosage: 15 MG, DAILY X 21 DAYS, PO; 5 MG, DAILY X21 DAYS, PO
     Route: 048
     Dates: start: 20100501
  6. FUROSEMIDE [Concomitant]
  7. POTASSIUM CHLORIDE [Concomitant]
  8. OXYCODONE HCL [Concomitant]
  9. HUMALOG [Concomitant]
  10. HYDROCODONE/CHLORPHENIRAMINE (TUSSIONEX PERNNKINETIC) [Concomitant]
  11. ALLOPURINOL [Concomitant]
  12. CADUET [Concomitant]

REACTIONS (1)
  - HAEMOGLOBIN DECREASED [None]
